FAERS Safety Report 14139642 (Version 1)
Quarter: 2017Q4

REPORT INFORMATION
  Report Type: Spontaneous
  Country: IT (occurrence: IT)
  Receive Date: 20171029
  Receipt Date: 20171029
  Transmission Date: 20180321
  Serious: Yes (Other)
  Sender: FDA-Public Use
  Company Number: PHHY2017IT158800

PATIENT
  Age: 62 Year
  Sex: Male

DRUGS (3)
  1. DICLOFENAC [Concomitant]
     Active Substance: DICLOFENAC
     Indication: PRODUCT USED FOR UNKNOWN INDICATION
     Route: 065
     Dates: start: 20110212, end: 20110216
  2. AMOXICILLIN+CLAVULANATE [Suspect]
     Active Substance: AMOXICILLIN\CLAVULANATE POTASSIUM
     Indication: PRODUCT USED FOR UNKNOWN INDICATION
     Route: 065
     Dates: start: 20110216, end: 20110216
  3. FLUIMUCIL [Concomitant]
     Active Substance: ACETYLCYSTEINE
     Indication: PRODUCT USED FOR UNKNOWN INDICATION
     Route: 065
     Dates: start: 20110216, end: 20110216

REACTIONS (2)
  - Butterfly rash [Recovering/Resolving]
  - Face oedema [Recovering/Resolving]

NARRATIVE: CASE EVENT DATE: 20110217
